FAERS Safety Report 8925816 (Version 3)
Quarter: 2014Q1

REPORT INFORMATION
  Report Type: Spontaneous
  Country: US (occurrence: US)
  Receive Date: 20121126
  Receipt Date: 20140206
  Transmission Date: 20141002
  Serious: Yes (Hospitalization, Other)
  Sender: FDA-Public Use
  Company Number: US-ROCHE-1096513

PATIENT
  Sex: Male
  Weight: 63.56 kg

DRUGS (1)
  1. ACCUTANE [Suspect]
     Indication: ACNE CYSTIC
     Route: 065
     Dates: start: 199802

REACTIONS (7)
  - Crohn^s disease [Unknown]
  - Intestinal obstruction [Unknown]
  - Colitis ulcerative [Unknown]
  - Anal fistula [Unknown]
  - Rectal polyp [Unknown]
  - Depression [Unknown]
  - Irritable bowel syndrome [Unknown]
